FAERS Safety Report 7716691-3 (Version None)
Quarter: 2011Q3

REPORT INFORMATION
  Report Type: 
  Country: None (occurrence: None)
  Receive Date: 20110829
  Receipt Date: 20110820
  Transmission Date: 20111222
  Serious: Yes (Hospitalization)
  Sender: FDA-Public Use
  Company Number: US-JNJFOC-20110809904

PATIENT
  Sex: Female
  Weight: 70.76 kg

DRUGS (3)
  1. PREDNISONE [Concomitant]
     Indication: CROHN'S DISEASE
     Route: 048
  2. REMICADE [Suspect]
     Indication: CROHN'S DISEASE
     Route: 042
     Dates: start: 20070101
  3. PENTASA [Concomitant]
     Indication: CROHN'S DISEASE
     Route: 048

REACTIONS (9)
  - WEIGHT FLUCTUATION [None]
  - BLOOD ALBUMIN ABNORMAL [None]
  - OEDEMA PERIPHERAL [None]
  - FISTULA [None]
  - PETECHIAE [None]
  - DEPRESSION [None]
  - THROMBOSIS [None]
  - SWELLING [None]
  - SURGERY [None]
